FAERS Safety Report 7353462-4 (Version None)
Quarter: 2011Q1

REPORT INFORMATION
  Report Type: 
  Country: None (occurrence: None)
  Receive Date: 20110315
  Receipt Date: 20110308
  Transmission Date: 20110831
  Serious: Yes (Hospitalization)
  Sender: FDA-Public Use
  Company Number: US-SANOFI-AVENTIS-2011SA014579

PATIENT
  Age: 72 Year
  Sex: Female

DRUGS (2)
  1. SOLOSTAR [Suspect]
     Dates: end: 20110216
  2. LANTUS [Suspect]
     Dosage: DOSE:22 UNIT(S)
     Route: 058
     Dates: end: 20110216

REACTIONS (4)
  - HYPERGLYCAEMIA [None]
  - INFLUENZA LIKE ILLNESS [None]
  - CARBON DIOXIDE DECREASED [None]
  - DIABETIC KETOACIDOSIS [None]
